FAERS Safety Report 16609809 (Version 7)
Quarter: 2020Q1

REPORT INFORMATION
  Report Type: Report from Study
  Country: US (occurrence: US)
  Receive Date: 20190722
  Receipt Date: 20200306
  Transmission Date: 20200409
  Serious: Yes (Hospitalization, Other)
  Sender: FDA-Public Use
  Company Number: US-ACTELION-A-NJ2019-193389

PATIENT
  Sex: Female
  Weight: 79.37 kg

DRUGS (10)
  1. OXYGEN. [Concomitant]
     Active Substance: OXYGEN
  2. UPTRAVI [Suspect]
     Active Substance: SELEXIPAG
     Indication: PULMONARY ARTERIAL HYPERTENSION
     Dosage: 1200 MCG, BID
     Route: 048
     Dates: start: 201904
  3. UPTRAVI [Suspect]
     Active Substance: SELEXIPAG
     Dosage: 1400 MCG, BID
     Route: 048
  4. NIFEDIPINE. [Concomitant]
     Active Substance: NIFEDIPINE
  5. UPTRAVI [Suspect]
     Active Substance: SELEXIPAG
     Dosage: 1000 MCG, BID
     Route: 048
  6. REMODULIN [Suspect]
     Active Substance: TREPROSTINIL
     Indication: PULMONARY ARTERIAL HYPERTENSION
     Route: 065
  7. OFEV [Concomitant]
     Active Substance: NINTEDANIB
  8. UPTRAVI [Suspect]
     Active Substance: SELEXIPAG
     Dosage: 800 MCG, BID
     Route: 048
  9. TADALAFIL. [Concomitant]
     Active Substance: TADALAFIL
  10. PLAVIX [Concomitant]
     Active Substance: CLOPIDOGREL BISULFATE

REACTIONS (22)
  - Back pain [Unknown]
  - Neuropathy peripheral [Recovering/Resolving]
  - Confusional state [Unknown]
  - Diarrhoea [Recovering/Resolving]
  - Fluid retention [Recovering/Resolving]
  - Disease progression [Unknown]
  - Catheterisation cardiac abnormal [Unknown]
  - Contusion [Unknown]
  - Dyspnoea [Recovering/Resolving]
  - Hypotension [Unknown]
  - Joint injury [Recovering/Resolving]
  - Musculoskeletal pain [Not Recovered/Not Resolved]
  - Pain in extremity [Not Recovered/Not Resolved]
  - Neuralgia [Recovering/Resolving]
  - Intraocular pressure increased [Unknown]
  - Erythema [Unknown]
  - Urinary tract infection [Unknown]
  - Glaucoma [Unknown]
  - Pain [Recovering/Resolving]
  - Walking disability [Recovering/Resolving]
  - Therapy change [Unknown]
  - Stent placement [Unknown]
